FAERS Safety Report 6888500-6 (Version None)
Quarter: 2010Q3

REPORT INFORMATION
  Report Type: 
  Country: None (occurrence: None)
  Receive Date: 20100730
  Receipt Date: 20100719
  Transmission Date: 20110219
  Serious: Yes (Hospitalization)
  Sender: FDA-Public Use
  Company Number: PHHY2010FR47740

PATIENT
  Sex: Male

DRUGS (5)
  1. TEGRETOL [Suspect]
     Indication: EPILEPSY
     Dosage: 1600 MG, QD
     Dates: end: 20100625
  2. TEGRETOL [Suspect]
     Dosage: 1200 MG, QD
     Dates: start: 20100626
  3. VIMPAT [Suspect]
     Indication: EPILEPSY
     Dosage: 50 MG, QD
     Dates: start: 20100517
  4. VIMPAT [Suspect]
     Dosage: 200 MG, QD
     Dates: start: 20100608, end: 20100626
  5. VIMPAT [Suspect]
     Dosage: 50 MG, BID
     Dates: start: 20100629

REACTIONS (5)
  - CEREBELLAR SYNDROME [None]
  - DRUG LEVEL INCREASED [None]
  - FALL [None]
  - NYSTAGMUS [None]
  - VERTIGO [None]
